FAERS Safety Report 25074147 (Version 1)
Quarter: 2025Q1

REPORT INFORMATION
  Report Type: Spontaneous
  Country: US (occurrence: None)
  Receive Date: 20250312
  Receipt Date: 20250312
  Transmission Date: 20250408
  Serious: Yes (Other)
  Sender: FDA-CTU
  Company Number: None

PATIENT
  Sex: Female

DRUGS (5)
  1. REPATHA [Suspect]
     Active Substance: EVOLOCUMAB
     Indication: Coronary artery disease
     Dosage: INJECT 1 PEN UNDER THE SKIN (SUBCUTANEOUS INJECTION) EVERY TWO WEEKS?
     Route: 058
     Dates: start: 20180628
  2. REPATHA [Suspect]
     Active Substance: EVOLOCUMAB
     Indication: Arteriosclerosis coronary artery
  3. MELATONIN TAB3MG [Concomitant]
  4. VITAMIN B12 TAB 1000McG [Concomitant]
  5. VITAMIN CAP 50000UNT [Concomitant]

REACTIONS (1)
  - Gastric cancer [None]
